FAERS Safety Report 6371468-9 (Version None)
Quarter: 2009Q3

REPORT INFORMATION
  Report Type: 
  Country: None (occurrence: None)
  Receive Date: 20090923
  Receipt Date: 20070727
  Transmission Date: 20100115
  Serious: Yes (Other)
  Sender: FDA-Public Use
  Company Number: US-ASTRAZENECA-2007UW09716

PATIENT
  Age: 8131 Day
  Sex: Male
  Weight: 99.8 kg

DRUGS (27)
  1. SEROQUEL [Suspect]
     Indication: DEPRESSION
     Route: 048
     Dates: start: 19981101
  2. SEROQUEL [Suspect]
     Indication: SCHIZOPHRENIA
     Route: 048
     Dates: start: 19981101
  3. SEROQUEL [Suspect]
     Dosage: 10-400 MG
     Route: 048
     Dates: start: 20000830
  4. SEROQUEL [Suspect]
     Dosage: 10-400 MG
     Route: 048
     Dates: start: 20000830
  5. ABILIFY [Concomitant]
     Route: 048
  6. ZESTRIL [Concomitant]
     Indication: BLOOD PRESSURE
     Route: 048
  7. ZESTRIL [Concomitant]
     Indication: PROTEINURIA
     Route: 048
  8. ASPIRIN [Concomitant]
     Dosage: 81-325 MG
     Route: 048
  9. TRAZODONE [Concomitant]
     Indication: INSOMNIA
     Route: 048
  10. ATIVAN [Concomitant]
     Dosage: 1-8 MG
     Route: 048
  11. ATIVAN [Concomitant]
     Dosage: 4-8 MG
     Route: 030
  12. PAXIL [Concomitant]
     Route: 048
  13. PROZAC [Concomitant]
     Route: 048
  14. PROLIXIN [Concomitant]
     Dosage: 5-20 MG
     Route: 048
  15. PROLIXIN [Concomitant]
     Dosage: 15-30 MG
     Route: 030
  16. WELLBUTRIN [Concomitant]
  17. ZYPREXA [Concomitant]
  18. RESTORIL [Concomitant]
     Route: 048
  19. LIPITOR [Concomitant]
     Route: 048
  20. HALDOL [Concomitant]
     Indication: PSYCHOTIC DISORDER
     Dosage: 5-30 MG
     Route: 048
  21. HALDOL [Concomitant]
     Route: 030
  22. LIBRIUM [Concomitant]
     Dosage: 100-300 MG
     Route: 048
  23. LIBRIUM [Concomitant]
     Route: 030
  24. COGENTIN [Concomitant]
     Indication: MUSCULOSKELETAL STIFFNESS
     Dosage: 2-32 MG
     Route: 048
  25. COGENTIN [Concomitant]
     Dosage: 2-6 MG
     Route: 030
  26. LOVASTATIN [Concomitant]
     Route: 048
  27. HUMULIN N [Concomitant]

REACTIONS (2)
  - DIABETIC KETOACIDOSIS [None]
  - TYPE 2 DIABETES MELLITUS [None]
